FAERS Safety Report 10203720 (Version 1)
Quarter: 2014Q2

REPORT INFORMATION
  Report Type: Spontaneous
  Country: DE (occurrence: None)
  Receive Date: 20140523
  Receipt Date: 20140523
  Transmission Date: 20141212
  Serious: Yes (Hospitalization)
  Sender: FDA-Public Use
  Company Number: AMLO20140015

PATIENT
  Age: 72 Year
  Sex: Male

DRUGS (1)
  1. AMLODIPINE BESYLATE [Suspect]
     Indication: HYPERTENSION
     Route: 048

REACTIONS (8)
  - Dystonia [None]
  - Muscle spasms [None]
  - Back pain [None]
  - Anxiety [None]
  - Moaning [None]
  - Dyspnoea [None]
  - Torticollis [None]
  - Akathisia [None]
